FAERS Safety Report 14929661 (Version 1)
Quarter: 2018Q2

REPORT INFORMATION
  Report Type: Report from Study
  Country: BE (occurrence: BE)
  Receive Date: 20180523
  Receipt Date: 20180523
  Transmission Date: 20180711
  Serious: Yes (Death, Hospitalization, Other)
  Sender: FDA-Public Use
  Company Number: BE-PFIZER INC-2018126936

PATIENT
  Age: 81 Year
  Sex: Female

DRUGS (6)
  1. PACLITAXEL. [Suspect]
     Active Substance: PACLITAXEL
     Indication: OVARIAN CANCER
     Dosage: 1 DF, WEEKLY
     Route: 042
     Dates: start: 20180123
  2. PACLITAXEL. [Suspect]
     Active Substance: PACLITAXEL
     Dosage: 45 MG, WEEKLY
     Route: 042
     Dates: start: 20180327
  3. CARBOPLATIN. [Suspect]
     Active Substance: CARBOPLATIN
     Indication: OVARIAN CANCER
     Dosage: 1 DF, WEEKLY (LAST DOSE 2 (UNIT NOT REPORTED)
     Route: 042
     Dates: start: 20180123
  4. CARBOPLATIN. [Suspect]
     Active Substance: CARBOPLATIN
     Dosage: 1 DF, WEEKLY DOSE2.0 (UNIT NOT REPORTED)
     Route: 042
     Dates: start: 20180327
  5. BEVACIZUMAB. [Suspect]
     Active Substance: BEVACIZUMAB
     Indication: OVARIAN CANCER
     Dosage: 756 UNK, EVERY 3 WEEKS
     Route: 042
     Dates: start: 20180123
  6. BEVACIZUMAB. [Suspect]
     Active Substance: BEVACIZUMAB
     Dosage: 753 MG, EVERY 3 WEEKS
     Route: 042
     Dates: start: 20180306

REACTIONS (17)
  - Dysgeusia [Not Recovered/Not Resolved]
  - Constipation [Recovered/Resolved]
  - Neuropathy peripheral [Not Recovered/Not Resolved]
  - Skin fissures [Not Recovered/Not Resolved]
  - Epistaxis [Not Recovered/Not Resolved]
  - Small intestinal perforation [Fatal]
  - Nausea [Not Recovered/Not Resolved]
  - Abdominal pain [Not Recovered/Not Resolved]
  - Hypotension [Not Recovered/Not Resolved]
  - Epistaxis [Not Recovered/Not Resolved]
  - Vertigo [Not Recovered/Not Resolved]
  - Dysuria [Recovered/Resolved]
  - Anaemia [Recovered/Resolved]
  - Hypertension [Not Recovered/Not Resolved]
  - Sinusitis [Recovered/Resolved]
  - Headache [Not Recovered/Not Resolved]
  - Constipation [Not Recovered/Not Resolved]

NARRATIVE: CASE EVENT DATE: 20180124
